FAERS Safety Report 12095193 (Version 2)
Quarter: 2016Q1

REPORT INFORMATION
  Report Type: Report from Study
  Country: US (occurrence: US)
  Receive Date: 20160219
  Receipt Date: 20160307
  Transmission Date: 20160526
  Serious: Yes (Death)
  Sender: FDA-Public Use
  Company Number: US-HLSUS-2016-US-000051

PATIENT
  Age: 41 Year
  Sex: Male
  Weight: 85 kg

DRUGS (8)
  1. OXYBUTYNIN [Concomitant]
     Active Substance: OXYBUTYNIN
  2. DEPAKOTE [Concomitant]
     Active Substance: DIVALPROEX SODIUM
  3. CLONAZEPAM. [Concomitant]
     Active Substance: CLONAZEPAM
  4. OLANZAPINE. [Concomitant]
     Active Substance: OLANZAPINE
  5. METOPROLOL. [Concomitant]
     Active Substance: METOPROLOL
  6. CLOZAPINE. [Suspect]
     Active Substance: CLOZAPINE
     Dosage: 200 MG PO TID 150 MG AT QHS
     Dates: start: 201408
  7. LATUDA [Concomitant]
     Active Substance: LURASIDONE HYDROCHLORIDE
  8. LISINOPRIL. [Concomitant]
     Active Substance: LISINOPRIL

REACTIONS (6)
  - Acute kidney injury [Unknown]
  - Respiratory acidosis [Unknown]
  - Shock [Unknown]
  - Liver function test increased [Unknown]
  - Cardiogenic shock [Unknown]
  - Cardiac arrest [Fatal]

NARRATIVE: CASE EVENT DATE: 201601
